FAERS Safety Report 24117460 (Version 1)
Quarter: 2024Q3

REPORT INFORMATION
  Report Type: Spontaneous
  Country: US (occurrence: US)
  Receive Date: 20240722
  Receipt Date: 20240722
  Transmission Date: 20241016
  Serious: No
  Sender: ABBVIE
  Company Number: US-ABBVIE-5841970

PATIENT
  Age: 46 Year
  Sex: Male

DRUGS (1)
  1. HUMIRA [Suspect]
     Active Substance: ADALIMUMAB
     Indication: Proctitis ulcerative
     Route: 058

REACTIONS (5)
  - Injection site discharge [Unknown]
  - Injection site haemorrhage [Unknown]
  - Injection site erythema [Not Recovered/Not Resolved]
  - Injection site papule [Recovered/Resolved]
  - Injection site swelling [Recovered/Resolved]

NARRATIVE: CASE EVENT DATE: 20240708
